FAERS Safety Report 15583206 (Version 1)
Quarter: 2018Q4

REPORT INFORMATION
  Report Type: Spontaneous
  Country: GB (occurrence: GB)
  Receive Date: 20181105
  Receipt Date: 20181105
  Transmission Date: 20190205
  Serious: Yes (Life-Threatening)
  Sender: FDA-Public Use
  Company Number: GB-CONCORDIA PHARMACEUTICALS INC.-E2B_00017255

PATIENT
  Age: 74 Year
  Sex: Male

DRUGS (10)
  1. RITUXIMAB. [Suspect]
     Active Substance: RITUXIMAB
     Indication: PARAPROTEINAEMIA
     Dosage: 6 CYCLES.
     Route: 042
     Dates: start: 20120401, end: 20121001
  2. SIMVASTATIN. [Concomitant]
     Active Substance: SIMVASTATIN
  3. PREDNISOLONE. [Suspect]
     Active Substance: PREDNISOLONE
     Indication: PARAPROTEINAEMIA
     Dosage: 6 CYCLES. COURSE OF 5 DAYS.
     Route: 048
     Dates: start: 20120401, end: 20121001
  4. BISOPROLOL [Concomitant]
     Active Substance: BISOPROLOL
  5. CARBOCISTEINE [Concomitant]
     Active Substance: CARBOCYSTEINE
  6. OMEPRAZOLE. [Concomitant]
     Active Substance: OMEPRAZOLE
  7. WARFARIN [Concomitant]
     Active Substance: WARFARIN
  8. BICALUTAMIDE. [Concomitant]
     Active Substance: BICALUTAMIDE
  9. CYCLOPHOSPHAMIDE. [Suspect]
     Active Substance: CYCLOPHOSPHAMIDE
     Indication: PARAPROTEINAEMIA
     Dosage: 6 CYCLES.
     Route: 042
     Dates: start: 20120401, end: 20121001
  10. ACICLOVIR [Concomitant]
     Active Substance: ACYCLOVIR

REACTIONS (3)
  - Seizure [Unknown]
  - Hemiparesis [Unknown]
  - Glioblastoma multiforme [Not Recovered/Not Resolved]

NARRATIVE: CASE EVENT DATE: 2018
